FAERS Safety Report 16767366 (Version 1)
Quarter: 2019Q3

REPORT INFORMATION
  Report Type: Spontaneous
  Country: US (occurrence: US)
  Receive Date: 20190903
  Receipt Date: 20190903
  Transmission Date: 20191005
  Serious: No
  Sender: FDA-Public Use
  Company Number: US-PFIZER INC-2019378163

PATIENT
  Sex: Male

DRUGS (2)
  1. THIOTHIXENE HCL [Suspect]
     Active Substance: THIOTHIXENE HYDROCHLORIDE
     Indication: SCHIZOPHRENIA
     Dosage: 8 MG, UNK
  2. RISPERIDONE. [Suspect]
     Active Substance: RISPERIDONE
     Dosage: 6 MG, UNK

REACTIONS (1)
  - Malaise [Unknown]
